FAERS Safety Report 11981453 (Version 1)
Quarter: 2016Q1

REPORT INFORMATION
  Report Type: Spontaneous
  Country: US (occurrence: None)
  Receive Date: 20160129
  Receipt Date: 20160129
  Transmission Date: 20160526
  Serious: No
  Sender: FDA-Public Use
  Company Number: None

PATIENT
  Age: 68 Year
  Sex: Female

DRUGS (7)
  1. PROLENSA [Concomitant]
     Active Substance: BROMFENAC SODIUM
  2. LETROZOLE. [Concomitant]
     Active Substance: LETROZOLE
  3. TRAMADOL. [Concomitant]
     Active Substance: TRAMADOL
  4. NASONEX [Concomitant]
     Active Substance: MOMETASONE FUROATE
  5. AMOXICILLIN. [Concomitant]
     Active Substance: AMOXICILLIN
  6. IBRANCE [Suspect]
     Active Substance: PALBOCICLIB
     Indication: BREAST CANCER
     Dosage: DAILY FOR 21 DAYS
     Route: 048
     Dates: start: 20151212
  7. NEO/POLY/DEX [Concomitant]
     Active Substance: DEXAMETHASONE\NEOMYCIN\POLYMYXIN B SULFATE

REACTIONS (2)
  - Therapy change [None]
  - White blood cell count decreased [None]

NARRATIVE: CASE EVENT DATE: 20160127
